FAERS Safety Report 23615028 (Version 3)
Quarter: 2024Q3

REPORT INFORMATION
  Report Type: Spontaneous
  Country: US (occurrence: US)
  Receive Date: 20240311
  Receipt Date: 20240813
  Transmission Date: 20241017
  Serious: No
  Sender: JOHNSON AND JOHNSON
  Company Number: US-JNJFOC-20240255259

PATIENT
  Age: 79 Year
  Sex: Female

DRUGS (5)
  1. WOMENS ROGAINE UNSCENTED [Suspect]
     Active Substance: MINOXIDIL
     Indication: Alopecia
     Dosage: 3 TO 3 1/2 WEEKS AGO, FOLLOWING THE LABEL
     Route: 061
     Dates: start: 2024, end: 2024
  2. WOMENS ROGAINE UNSCENTED [Suspect]
     Active Substance: MINOXIDIL
     Indication: Accidental exposure to product
  3. ELIQUIS [Concomitant]
     Active Substance: APIXABAN
     Indication: Heart valve replacement
     Route: 065
  4. METOPROLOL [Concomitant]
     Active Substance: METOPROLOL
     Indication: Blood pressure abnormal
     Route: 065
  5. SIMVASTATIN [Concomitant]
     Active Substance: SIMVASTATIN
     Indication: Blood cholesterol abnormal
     Route: 065

REACTIONS (4)
  - Eye irritation [Recovered/Resolved]
  - Accidental exposure to product [Unknown]
  - Product formulation issue [Unknown]
  - Poor quality product administered [Unknown]

NARRATIVE: CASE EVENT DATE: 20240101
